FAERS Safety Report 8910279 (Version 2)
Quarter: 2012Q4

REPORT INFORMATION
  Report Type: 
  Country: US (occurrence: US)
  Receive Date: 20121115
  Receipt Date: 20121219
  Transmission Date: 20130627
  Serious: No
  Sender: FDA-Public Use
  Company Number: US-BIOGENIDEC-2012BI051970

PATIENT
  Age: 37 Year
  Sex: Male

DRUGS (2)
  1. TYSABRI [Suspect]
     Indication: MULTIPLE SCLEROSIS
     Route: 042
     Dates: start: 20080919, end: 20091216
  2. TYSABRI [Suspect]
     Indication: MULTIPLE SCLEROSIS
     Route: 042
     Dates: start: 20111228, end: 201210

REACTIONS (5)
  - Vision blurred [Unknown]
  - Balance disorder [Unknown]
  - Optic neuritis [Unknown]
  - Feeling abnormal [Unknown]
  - Multiple sclerosis relapse [Recovered/Resolved]
